FAERS Safety Report 4638341-5 (Version None)
Quarter: 2005Q2

REPORT INFORMATION
  Report Type: 
  Country: None (occurrence: None)
  Receive Date: 20050418
  Receipt Date: 20050411
  Transmission Date: 20051028
  Serious: Yes (Death, Hospitalization)
  Sender: FDA-Public Use
  Company Number: BR-MERCK-0504BRA00015

PATIENT
  Age: 56 Year
  Sex: Male

DRUGS (7)
  1. VIOXX [Suspect]
     Indication: PAIN
     Route: 048
     Dates: start: 20011201, end: 20020301
  2. ASCORBIC ACID AND FERROUS SULFATE AND FOLIC ACID [Concomitant]
     Indication: VITAMIN SUPPLEMENTATION
     Route: 065
  3. MANIDIPINE HYDROCHLORIDE [Concomitant]
     Indication: HYPERTENSION
     Route: 048
  4. OMEPRAZOLE [Concomitant]
     Indication: ULCER
     Route: 048
  5. NIZATIDINE [Concomitant]
     Indication: ULCER
     Route: 048
  6. VITAMINS (UNSPECIFIED) AND MINERALS (UNSPECIFIED) [Concomitant]
     Indication: MINERAL SUPPLEMENTATION
     Route: 048
  7. ISOSORBIDE DINITRATE [Concomitant]
     Indication: ANGINA PECTORIS
     Route: 060

REACTIONS (1)
  - MYOCARDIAL INFARCTION [None]
